FAERS Safety Report 13602730 (Version 1)
Quarter: 2017Q2

REPORT INFORMATION
  Report Type: Spontaneous
  Country: US (occurrence: US)
  Receive Date: 20170601
  Receipt Date: 20170601
  Transmission Date: 20170830
  Serious: Yes (Other)
  Sender: FDA-Public Use
  Company Number: US-MALLINCKRODT-T201702252

PATIENT
  Sex: Female
  Weight: 54 kg

DRUGS (2)
  1. METHADONE [Suspect]
     Active Substance: METHADONE HYDROCHLORIDE
     Indication: PAIN
     Dosage: 30 MG, QID
     Route: 048
     Dates: start: 2007, end: 2014
  2. METHADONE [Suspect]
     Active Substance: METHADONE HYDROCHLORIDE
     Indication: NERVE INJURY
     Dosage: 10 MG, QID
     Route: 048
     Dates: start: 2014, end: 2016

REACTIONS (3)
  - Fall [Recovered/Resolved]
  - Drug effect increased [Recovered/Resolved]
  - Narcolepsy [Recovered/Resolved]

NARRATIVE: CASE EVENT DATE: 2007
